FAERS Safety Report 5141192-9 (Version None)
Quarter: 2006Q4

REPORT INFORMATION
  Report Type: 
  Country: None (occurrence: None)
  Receive Date: 20061101
  Receipt Date: 20061009
  Transmission Date: 20070319
  Serious: Yes (Hospitalization)
  Sender: FDA-Public Use
  Company Number: PHBS2006ZA15921

PATIENT
  Age: 40 Year
  Sex: Male
  Weight: 75 kg

DRUGS (3)
  1. PEG-INTRON [Suspect]
     Indication: CARCINOID TUMOUR
     Dosage: 100 UG, QW
     Route: 065
     Dates: start: 20051101, end: 20060901
  2. SANDOSTATIN LAR [Suspect]
     Indication: CARCINOID TUMOUR
     Dosage: 30 MG TWICE A MONTH
  3. SANDOSTATIN LAR [Suspect]
     Route: 065
     Dates: start: 20030101

REACTIONS (1)
  - PULMONARY EMBOLISM [None]
